FAERS Safety Report 24525796 (Version 3)
Quarter: 2024Q4

REPORT INFORMATION
  Report Type: Spontaneous
  Country: GR (occurrence: GR)
  Receive Date: 20241020
  Receipt Date: 20241203
  Transmission Date: 20250114
  Serious: Yes (Death)
  Sender: ROCHE
  Company Number: GR-BoehringerIngelheim-2024-BI-057261

PATIENT
  Age: 82 Year
  Sex: Female

DRUGS (1)
  1. ALTEPLASE [Suspect]
     Active Substance: ALTEPLASE
     Indication: Atrial thrombosis
     Route: 065

REACTIONS (3)
  - Haemodynamic instability [Fatal]
  - Pulmonary function test decreased [Fatal]
  - Blood gases abnormal [Fatal]
